FAERS Safety Report 7988528-9 (Version None)
Quarter: 2011Q4

REPORT INFORMATION
  Report Type: 
  Country: None (occurrence: None)
  Receive Date: 20111218
  Receipt Date: 20111213
  Transmission Date: 20120403
  Serious: Yes (Hospitalization)
  Sender: FDA-Public Use
  Company Number: US-VERTEX PHARMACEUTICALS INC.-AE-2011-004978

PATIENT
  Sex: Female
  Weight: 90.7 kg

DRUGS (6)
  1. RIBAVIRIN [Concomitant]
     Indication: HEPATITIS C
     Route: 048
     Dates: start: 20111122, end: 20111204
  2. RIBAVIRIN [Concomitant]
     Route: 048
     Dates: start: 20111213
  3. PEGASYS [Concomitant]
     Indication: HEPATITIS C
     Route: 058
     Dates: start: 20111122
  4. INCIVEK [Suspect]
     Indication: HEPATITIS C
     Route: 048
     Dates: start: 20111122
  5. PEGASYS [Concomitant]
     Route: 058
     Dates: start: 20111213
  6. RIBAVIRIN [Concomitant]
     Route: 048
     Dates: start: 20111205, end: 20111212

REACTIONS (9)
  - BODY TEMPERATURE INCREASED [None]
  - HEADACHE [None]
  - NAUSEA [None]
  - WHITE BLOOD CELL COUNT DECREASED [None]
  - EPISTAXIS [None]
  - COUGH [None]
  - PLATELET COUNT DECREASED [None]
  - RED BLOOD CELL COUNT DECREASED [None]
  - VOMITING [None]
